FAERS Safety Report 21525623 (Version 2)
Quarter: 2022Q4

REPORT INFORMATION
  Report Type: Report from Study
  Country: DE (occurrence: DE)
  Receive Date: 20221031
  Receipt Date: 20221107
  Transmission Date: 20230113
  Serious: Yes (Life-Threatening, Other)
  Sender: FDA-Public Use
  Company Number: DE-BRISTOL-MYERS SQUIBB COMPANY-2022-115262

PATIENT
  Age: 41 Year
  Sex: Male

DRUGS (11)
  1. NIVOLUMAB [Suspect]
     Active Substance: NIVOLUMAB
     Indication: Rhabdomyosarcoma
     Route: 042
     Dates: start: 20220909, end: 20220909
  2. CARBOPLATIN [Suspect]
     Active Substance: CARBOPLATIN
     Indication: Rhabdomyosarcoma
     Route: 042
     Dates: start: 20220630, end: 20220703
  3. INVESTIGATIONAL PRODUCT [Suspect]
     Active Substance: INVESTIGATIONAL PRODUCT
     Indication: Rhabdomyosarcoma
     Dosage: DL4: 1200X10^6 CELLS/SQ.M
     Route: 042
     Dates: start: 20220825, end: 20220825
  4. ALDESLEUKIN [Suspect]
     Active Substance: ALDESLEUKIN
     Indication: Rhabdomyosarcoma
     Dosage: 1*10^6 IU
     Route: 058
     Dates: start: 20220826, end: 20220904
  5. FLUDARABINE [Suspect]
     Active Substance: FLUDARABINE PHOSPHATE
     Indication: Rhabdomyosarcoma
     Route: 041
     Dates: start: 20220819, end: 20220822
  6. CYCLOPHOSPHAMIDE [Suspect]
     Active Substance: CYCLOPHOSPHAMIDE
     Indication: Rhabdomyosarcoma
     Route: 041
     Dates: start: 20220819, end: 20220822
  7. TOPOTECAN [Suspect]
     Active Substance: TOPOTECAN HYDROCHLORIDE
     Indication: Rhabdomyosarcoma
     Route: 042
     Dates: start: 20220630, end: 20220703
  8. VINCRISTINE [Concomitant]
     Active Substance: VINCRISTINE
     Indication: Product used for unknown indication
     Dates: start: 20220922, end: 20220922
  9. IRINOTECAN [Concomitant]
     Active Substance: IRINOTECAN
     Indication: Product used for unknown indication
     Dates: start: 20220922, end: 20220922
  10. TEMOZOLOMIDE [Concomitant]
     Active Substance: TEMOZOLOMIDE
     Indication: Product used for unknown indication
     Dates: start: 20220922, end: 20220922
  11. FILGRASTIM [Concomitant]
     Active Substance: FILGRASTIM
     Indication: Product used for unknown indication
     Dosage: 48 MIU
     Dates: start: 20220916, end: 20221024

REACTIONS (1)
  - Neutrophil count decreased [Recovered/Resolved]

NARRATIVE: CASE EVENT DATE: 20220922
